FAERS Safety Report 6195738-2 (Version None)
Quarter: 2009Q2

REPORT INFORMATION
  Report Type: 
  Country: None (occurrence: None)
  Receive Date: 20090520
  Receipt Date: 20090515
  Transmission Date: 20091009
  Serious: Yes (Other)
  Sender: FDA-Public Use
  Company Number: PL-BRISTOL-MYERS SQUIBB COMPANY-14626881

PATIENT
  Age: 35 Year
  Sex: Female

DRUGS (3)
  1. DASATINIB [Suspect]
     Indication: ACUTE LYMPHOCYTIC LEUKAEMIA
     Dosage: INTERRUPTED ON NOV2008
     Dates: start: 20080701
  2. CYCLOPHOSPHAMIDE [Suspect]
  3. RADIATION THERAPY [Suspect]
     Dosage: 1DF- 12 GY BEFORE TRANSPLANT

REACTIONS (7)
  - CYTOMEGALOVIRUS INFECTION [None]
  - FEBRILE NEUTROPENIA [None]
  - GRANULOCYTE COUNT DECREASED [None]
  - HEPATOTOXICITY [None]
  - NAUSEA [None]
  - STOMATITIS [None]
  - VOMITING [None]
